FAERS Safety Report 7054157-7 (Version None)
Quarter: 2010Q4

REPORT INFORMATION
  Report Type: 
  Country: None (occurrence: None)
  Receive Date: 20101020
  Receipt Date: 20101013
  Transmission Date: 20110411
  Serious: Yes (Other)
  Sender: FDA-Public Use
  Company Number: US-TEVA-251732USA

PATIENT
  Sex: Male

DRUGS (1)
  1. AMOXICILLIN 250 MG + 500 MG CAPSULES [Suspect]
     Dosage: 400MG/5ML
     Route: 048

REACTIONS (1)
  - BLOOD GLUCOSE INCREASED [None]
